FAERS Safety Report 7444347-3 (Version None)
Quarter: 2011Q2

REPORT INFORMATION
  Report Type: 
  Country: None (occurrence: None)
  Receive Date: 20110429
  Receipt Date: 20110415
  Transmission Date: 20111010
  Serious: Yes (Hospitalization, Other)
  Sender: FDA-Public Use
  Company Number: GB-RANBAXY-2011R1-43496

PATIENT
  Age: 50 Year
  Sex: Female

DRUGS (5)
  1. ACETAMINOPHEN [Suspect]
     Indication: PRODUCT USED FOR UNKNOWN INDICATION
     Dosage: 4 G, QD
     Route: 065
  2. PHENYTOIN [Interacting]
     Indication: EPILEPSY
  3. CARBAMAZEPINE [Interacting]
     Indication: EPILEPSY
     Route: 065
  4. FLUCLOXACILLIN [Interacting]
     Indication: SEPSIS
     Dosage: 8 G, UNK
     Route: 042
  5. PHENOBARBITAL [Interacting]
     Indication: EPILEPSY
     Route: 065

REACTIONS (8)
  - METABOLIC ACIDOSIS [None]
  - PYROGLUTAMATE INCREASED [None]
  - SEPSIS [None]
  - TACHYCARDIA [None]
  - TACHYPNOEA [None]
  - HYPOTENSION [None]
  - DRUG INTERACTION [None]
  - DEPRESSED LEVEL OF CONSCIOUSNESS [None]
